FAERS Safety Report 10065121 (Version 1)
Quarter: 2014Q1

REPORT INFORMATION
  Report Type: Spontaneous
  Country: US (occurrence: None)
  Receive Date: 20140328
  Receipt Date: 20140328
  Transmission Date: 20141002
  Serious: No
  Sender: FDA-Public Use
  Company Number: CABO-13003740

PATIENT
  Age: 34 Year
  Sex: Male
  Weight: 75.9 kg

DRUGS (3)
  1. COMETRIQ (CABOZANTINIB) [Suspect]
     Indication: THYROID CANCER
     Route: 048
     Dates: start: 20131127
  2. SYNTHROID (LEVOTHYROXINE SODIUM) [Concomitant]
  3. CALTRATE + D (CALCIUM CARBONATE COLECALCIFEROL) [Concomitant]

REACTIONS (9)
  - Skin ulcer [None]
  - Myalgia [None]
  - Dry mouth [None]
  - Pruritus [None]
  - Lower respiratory tract infection [None]
  - Stomatitis [None]
  - Dry skin [None]
  - Hair colour changes [None]
  - Aphonia [None]
